FAERS Safety Report 13824019 (Version 2)
Quarter: 2017Q3

REPORT INFORMATION
  Report Type: Spontaneous
  Country: GB (occurrence: GB)
  Receive Date: 20170802
  Receipt Date: 20170818
  Transmission Date: 20171127
  Serious: Yes (Other)
  Sender: FDA-Public Use
  Company Number: GB-TEVA-790023ACC

PATIENT
  Sex: Male

DRUGS (5)
  1. DICLOFENAC [Suspect]
     Active Substance: DICLOFENAC
     Indication: ARTHRITIS
     Route: 065
  2. VOLTAROL [Suspect]
     Active Substance: DICLOFENAC SODIUM
     Indication: ARTHRITIS
     Dosage: 2 DF
     Route: 065
  3. VOLTAROL [Suspect]
     Active Substance: DICLOFENAC SODIUM
     Dosage: 3 DOSAGE FORMS DAILY; 1 DF, TID
     Route: 065
  4. METFORMIN [Suspect]
     Active Substance: METFORMIN HYDROCHLORIDE
     Indication: DIABETES MELLITUS
     Route: 065
  5. VOLTAROL [Suspect]
     Active Substance: DICLOFENAC SODIUM
     Indication: ARTHRITIS
     Dosage: 3 DOSAGE FORMS DAILY; 1 DF, TID
     Route: 065

REACTIONS (5)
  - Drug dependence [Unknown]
  - Pain [Unknown]
  - Drug ineffective [Unknown]
  - Movement disorder [Unknown]
  - Therapeutic response unexpected [Unknown]
